FAERS Safety Report 5358468-2 (Version None)
Quarter: 2007Q2

REPORT INFORMATION
  Report Type: 
  Country: None (occurrence: None)
  Receive Date: 20070614
  Receipt Date: 20070614
  Transmission Date: 20071010
  Serious: Yes (Other)
  Sender: FDA-Public Use
  Company Number: None

PATIENT
  Sex: Female

DRUGS (10)
  1. REVLIMID [Suspect]
     Indication: MULTIPLE MYELOMA
     Dosage: 25MG DAILY 21D/28D PO
     Route: 048
  2. HYDROCHLOROTHIAZIE [Concomitant]
  3. PROCRIT [Concomitant]
  4. PERCOCET [Concomitant]
  5. FEMARA [Concomitant]
  6. GABAPENTIN [Concomitant]
  7. MEGESTROL ACETATE [Concomitant]
  8. NIFEDIPINE [Concomitant]
  9. ATENOLOL [Concomitant]
  10. ISORDIL [Concomitant]

REACTIONS (2)
  - NEUTROPENIA [None]
  - THROMBOCYTOPENIA [None]
